FAERS Safety Report 12507638 (Version 2)
Quarter: 2016Q3

REPORT INFORMATION
  Report Type: Report from Study
  Country: HU (occurrence: HU)
  Receive Date: 20160629
  Receipt Date: 20160712
  Transmission Date: 20161109
  Serious: Yes (Hospitalization, Other)
  Sender: FDA-Public Use
  Company Number: PHHY2015HU040706

PATIENT
  Age: 44 Year
  Sex: Female
  Weight: 72 kg

DRUGS (3)
  1. HERPESIN [Concomitant]
     Indication: ANTIVIRAL TREATMENT
     Dosage: 1 DF, 4 TIMES
     Route: 065
  2. GILENYA [Suspect]
     Active Substance: FINGOLIMOD HYDROCHLORIDE
     Indication: MULTIPLE SCLEROSIS
     Dosage: 0.5 MG, QD
     Route: 048
     Dates: start: 20150302, end: 201503
  3. RECEPHIN [Concomitant]
     Indication: PROPHYLAXIS
     Dosage: 2 G, QD
     Route: 065

REACTIONS (5)
  - Immune reconstitution inflammatory syndrome [Recovering/Resolving]
  - Cognitive disorder [Recovering/Resolving]
  - Progressive multifocal leukoencephalopathy [Recovering/Resolving]
  - Central nervous system lesion [Unknown]
  - General physical condition abnormal [Unknown]

NARRATIVE: CASE EVENT DATE: 201503
